FAERS Safety Report 8346436-8 (Version None)
Quarter: 2012Q2

REPORT INFORMATION
  Report Type: 
  Country: None (occurrence: None)
  Receive Date: 20120509
  Receipt Date: 20120504
  Transmission Date: 20120825
  Serious: Yes (Disabling)
  Sender: FDA-Public Use
  Company Number: US-PFIZER INC-2012110458

PATIENT
  Sex: Female
  Weight: 90.7 kg

DRUGS (5)
  1. NEURONTIN [Suspect]
     Indication: MIGRAINE
  2. NEURONTIN [Suspect]
     Indication: CONVULSION
     Dosage: 800 MG, 3X/DAY
     Route: 048
  3. ELAVIL [Concomitant]
     Dosage: UNK
  4. NEURONTIN [Suspect]
     Indication: ALOPECIA
  5. NEURONTIN [Suspect]
     Indication: HEADACHE

REACTIONS (2)
  - BACK DISORDER [None]
  - MULTIPLE SCLEROSIS [None]
